FAERS Safety Report 14600332 (Version 1)
Quarter: 2018Q1

REPORT INFORMATION
  Report Type: Report from Study
  Country: FR (occurrence: FR)
  Receive Date: 20180305
  Receipt Date: 20180305
  Transmission Date: 20180509
  Serious: Yes (Hospitalization, Other)
  Sender: FDA-Public Use
  Company Number: FR-VIIV HEALTHCARE LIMITED-FR2018032088

PATIENT
  Age: 41 Year
  Sex: Male
  Weight: 83 kg

DRUGS (5)
  1. DOXORUBICIN [Suspect]
     Active Substance: DOXORUBICIN
     Indication: LYMPHOMA
     Dosage: UNK
     Route: 042
     Dates: start: 20160811, end: 20161206
  2. ENDOXAN [Suspect]
     Active Substance: CYCLOPHOSPHAMIDE
     Indication: LYMPHOMA
     Dosage: UNK
     Route: 042
     Dates: start: 20160811, end: 20161206
  3. ZIDOVUDINE. [Suspect]
     Active Substance: ZIDOVUDINE
     Indication: LYMPHOMA
     Dosage: 600 MG, QD
     Route: 042
     Dates: start: 20160811
  4. BRENTUXIMAB VEDOTIN [Suspect]
     Active Substance: BRENTUXIMAB VEDOTIN
     Indication: ANGIOCENTRIC LYMPHOMA
     Dosage: 150 MG, UNK
     Route: 042
     Dates: start: 20160811, end: 20161206
  5. BRENTUXIMAB VEDOTIN [Suspect]
     Active Substance: BRENTUXIMAB VEDOTIN
     Dosage: 145 MG, UNK
     Route: 042
     Dates: start: 20170110, end: 20170207

REACTIONS (5)
  - Anaemia [Recovered/Resolved]
  - Weight decreased [Unknown]
  - Enteritis [Recovered/Resolved]
  - Neutropenia [Recovered/Resolved]
  - Off label use [Unknown]

NARRATIVE: CASE EVENT DATE: 20160811
